FAERS Safety Report 6299320-8 (Version None)
Quarter: 2009Q3

REPORT INFORMATION
  Report Type: 
  Country: None (occurrence: None)
  Receive Date: 20090806
  Receipt Date: 20090729
  Transmission Date: 20100115
  Serious: Yes (Death)
  Sender: FDA-Public Use
  Company Number: US-BAYER-200927168GPV

PATIENT

DRUGS (1)
  1. SORAFENIB [Suspect]
     Indication: METASTASES TO LUNG
     Dosage: START DOSE
     Route: 048

REACTIONS (1)
  - PNEUMOTHORAX [None]
